FAERS Safety Report 17326492 (Version 1)
Quarter: 2020Q1

REPORT INFORMATION
  Report Type: Spontaneous
  Country: US (occurrence: US)
  Receive Date: 20200127
  Receipt Date: 20200127
  Transmission Date: 20200409
  Serious: Yes (Hospitalization, Other)
  Sender: FDA-Public Use
  Company Number: US-PFIZER INC-2020028636

PATIENT
  Age: 46 Year
  Sex: Male

DRUGS (3)
  1. ISOCET [BUTALBITAL;CAFFEINE;PARACETAMOL] [Interacting]
     Active Substance: ACETAMINOPHEN\BUTALBITAL\CAFFEINE
     Indication: HEADACHE
     Dosage: 2 DF, UNK (TWO TABLETS)
  2. DILANTIN [Suspect]
     Active Substance: PHENYTOIN
     Indication: TEMPORAL LOBE EPILEPSY
     Dosage: UNK
  3. ISOCET [BUTALBITAL;CAFFEINE;PARACETAMOL] [Interacting]
     Active Substance: ACETAMINOPHEN\BUTALBITAL\CAFFEINE
     Indication: TENSION HEADACHE

REACTIONS (3)
  - Acute hepatic failure [Unknown]
  - Drug interaction [Unknown]
  - Hepatic necrosis [Unknown]

NARRATIVE: CASE EVENT DATE: 19870409
